FAERS Safety Report 10144014 (Version 2)
Quarter: 2014Q2

REPORT INFORMATION
  Report Type: Spontaneous
  Country: FR (occurrence: FR)
  Receive Date: 20140430
  Receipt Date: 20140430
  Transmission Date: 20141212
  Serious: Yes (Life-Threatening, Hospitalization)
  Sender: FDA-Public Use
  Company Number: FR-TEVA-405426ISR

PATIENT
  Age: 19 Year
  Sex: Female
  Weight: 67 kg

DRUGS (1)
  1. LEELOO [Suspect]
     Indication: CONTRACEPTION
     Dosage: 1 DOSAGE FORMS DAILY;
     Route: 048
     Dates: start: 20130201, end: 2013

REACTIONS (5)
  - Pulmonary embolism [Unknown]
  - Pulmonary infarction [Unknown]
  - Chest pain [Unknown]
  - Pyrexia [Unknown]
  - Haemoptysis [Unknown]
